FAERS Safety Report 18006987 (Version 1)
Quarter: 2020Q3

REPORT INFORMATION
  Report Type: Report from Study
  Country: US (occurrence: US)
  Receive Date: 20200710
  Receipt Date: 20200710
  Transmission Date: 20201103
  Serious: No
  Sender: FDA-Public Use
  Company Number: US-KYOWAKIRIN-2020BKK011340

PATIENT

DRUGS (2)
  1. CRYSVITA [Suspect]
     Active Substance: BUROSUMAB-TWZA
     Dosage: 30 MG (ONE INJECTION), EVERY 14 DAYS
     Route: 058
     Dates: start: 20190613
  2. CRYSVITA [Suspect]
     Active Substance: BUROSUMAB-TWZA
     Indication: HEREDITARY HYPOPHOSPHATAEMIC RICKETS
     Dosage: 30 MG (ONE INJECTION), EVERY 14 DAYS
     Route: 058
     Dates: start: 20190613

REACTIONS (1)
  - Injection site pain [Not Recovered/Not Resolved]
